FAERS Safety Report 7060617-5 (Version None)
Quarter: 2010Q4

REPORT INFORMATION
  Report Type: 
  Country: None (occurrence: None)
  Receive Date: 20101025
  Receipt Date: 20101014
  Transmission Date: 20110411
  Serious: Yes (Hospitalization)
  Sender: FDA-Public Use
  Company Number: KR-ELI_LILLY_AND_COMPANY-KR201010003406

PATIENT
  Age: 73 Year
  Sex: Female

DRUGS (4)
  1. HUMALOG MIX 75/25 [Suspect]
     Dosage: 20U MORNING, 16U EVENING
     Dates: start: 20100901
  2. HUMALOG MIX 75/25 [Suspect]
     Dosage: 18 U, EACH EVENING
     Dates: start: 20100901
  3. HUMALOG MIX 75/25 [Suspect]
     Dosage: 16 U, EACH EVENING
     Dates: start: 20101001
  4. HUMALOG MIX 75/25 [Suspect]
     Dosage: 20 U, EACH MORNING

REACTIONS (1)
  - PNEUMONIA [None]
